FAERS Safety Report 4699825-7 (Version None)
Quarter: 2005Q2

REPORT INFORMATION
  Report Type: 
  Country: None (occurrence: None)
  Receive Date: 20050623
  Receipt Date: 20050607
  Transmission Date: 20051028
  Serious: Yes (Hospitalization)
  Sender: FDA-Public Use
  Company Number: US-2005-009962

PATIENT
  Age: 19 Year
  Sex: Female
  Weight: 77.3 kg

DRUGS (18)
  1. CAMPATH [Suspect]
     Indication: RENAL TRANSPLANT
     Dosage: 20 MG, 1 DOSE, INTRAVENOUS
     Route: 042
     Dates: start: 20040623, end: 20040623
  2. CAMPATH [Suspect]
     Indication: RENAL TRANSPLANT
     Dosage: 20 MG, 1 DOSE, INTRAVENOUS
     Route: 042
     Dates: start: 20050627, end: 20050627
  3. NYSTATIN [Concomitant]
  4. FLORINEF [Concomitant]
  5. NORVASC [Concomitant]
  6. PROTONIX [Concomitant]
  7. ASPIRIN [Concomitant]
  8. MAALOX (MAGNESIUM HYDROXIDE, ALGELDRATE) [Concomitant]
  9. POTASSIUM PHOSPHATE DIBASIC (POTASSIUM PHOSPHATE DIBASIC) [Concomitant]
  10. MAGNESIUM (MAGNESIUM) [Concomitant]
  11. FOLIC ACID [Concomitant]
  12. CARAFATE [Concomitant]
  13. BENADRYL (AMMONIUM CHLORIDE, DIPHENHYDRAMINE HYDROCHLORIDE, MENTHOL) [Concomitant]
  14. HYDROCORTISONE [Concomitant]
  15. METHYLPREDNISOLONE [Concomitant]
  16. TACROLIMUS (TACROLIMUS) [Concomitant]
  17. SIROLIMUS (SIROLIMUS) [Concomitant]
  18. TYLENOL [Concomitant]

REACTIONS (14)
  - ARTERIOSCLEROSIS [None]
  - BLOOD BICARBONATE INCREASED [None]
  - BLOOD CHLORIDE INCREASED [None]
  - BLOOD CREATININE INCREASED [None]
  - BLOOD POTASSIUM INCREASED [None]
  - GENERALISED OEDEMA [None]
  - GLOMERULONEPHRITIS PROLIFERATIVE [None]
  - HAEMATOCRIT DECREASED [None]
  - INJURY [None]
  - PLASMAPHERESIS [None]
  - PROTEINURIA [None]
  - RENAL TUBULAR DISORDER [None]
  - WEIGHT INCREASED [None]
  - WHITE BLOOD CELL COUNT DECREASED [None]
